FAERS Safety Report 5874269-0 (Version None)
Quarter: 2008Q3

REPORT INFORMATION
  Report Type: 
  Country: None (occurrence: None)
  Receive Date: 20080908
  Receipt Date: 20080902
  Transmission Date: 20090109
  Serious: Yes (Hospitalization)
  Sender: FDA-Public Use
  Company Number: US-PURDUE-USA_2008_0034703

PATIENT
  Age: 63 Year
  Sex: Female

DRUGS (4)
  1. OXYCONTIN [Suspect]
     Indication: FIBROMYALGIA
     Route: 048
  2. AMBIEN [Suspect]
     Indication: INSOMNIA
     Dosage: 10 MG, HS
     Route: 048
  3. BUSPAR [Suspect]
     Indication: DRUG USE FOR UNKNOWN INDICATION
  4. HYDROCHLOROTHIAZIDE [Concomitant]
     Indication: DRUG USE FOR UNKNOWN INDICATION

REACTIONS (3)
  - DRUG INTERACTION [None]
  - DRUG WITHDRAWAL SYNDROME [None]
  - HALLUCINATIONS, MIXED [None]
